FAERS Safety Report 20493068 (Version 1)
Quarter: 2022Q1

REPORT INFORMATION
  Report Type: Spontaneous
  Country: BE (occurrence: BE)
  Receive Date: 20220220
  Receipt Date: 20220220
  Transmission Date: 20220424
  Serious: Yes (Other)
  Sender: FDA-Public Use
  Company Number: None

PATIENT
  Sex: Female

DRUGS (10)
  1. VALGANCICLOVIR HYDROCHLORIDE [Suspect]
     Active Substance: VALGANCICLOVIR HYDROCHLORIDE
     Indication: Cytomegalovirus infection reactivation
     Dosage: UNK
     Route: 065
  2. VALGANCICLOVIR HYDROCHLORIDE [Suspect]
     Active Substance: VALGANCICLOVIR HYDROCHLORIDE
     Indication: Oral herpes
  3. VALGANCICLOVIR HYDROCHLORIDE [Suspect]
     Active Substance: VALGANCICLOVIR HYDROCHLORIDE
     Indication: Ophthalmic herpes zoster
  4. ACYCLOVIR [Suspect]
     Active Substance: ACYCLOVIR
     Indication: Ophthalmic herpes simplex
     Dosage: UNK
     Route: 065
  5. ACYCLOVIR [Suspect]
     Active Substance: ACYCLOVIR
     Indication: Ophthalmic herpes zoster
     Dosage: 800 MILLIGRAM (5 TIMES A DAY)
     Route: 048
  6. ACYCLOVIR [Suspect]
     Active Substance: ACYCLOVIR
     Indication: Cytomegalovirus infection reactivation
     Dosage: REDUCED TO 400 MILLIGRAM, BID (PROPHYLACTIC)
     Route: 048
  7. ACYCLOVIR [Suspect]
     Active Substance: ACYCLOVIR
     Indication: Oral herpes
     Dosage: 400 MILLIGRAM (5 TIMES A DAY)
     Route: 048
  8. BRIVUDINE [Concomitant]
     Active Substance: BRIVUDINE
     Indication: Ophthalmic herpes simplex
     Dosage: 0.1 PERCENT
     Route: 061
  9. BRIVUDINE [Concomitant]
     Active Substance: BRIVUDINE
     Dosage: UNK, BVDU 5 TIMES A DAY
     Route: 065
  10. BRIVUDINE [Concomitant]
     Active Substance: BRIVUDINE
     Dosage: UNK, BVDU 8 TIMES A DAY
     Route: 065

REACTIONS (4)
  - Hepatitis [Unknown]
  - Pathogen resistance [Unknown]
  - Drug ineffective [Unknown]
  - Off label use [Unknown]
